FAERS Safety Report 10093369 (Version 1)
Quarter: 2014Q2

REPORT INFORMATION
  Report Type: Spontaneous
  Country: US (occurrence: US)
  Receive Date: 20140421
  Receipt Date: 20140421
  Transmission Date: 20141212
  Serious: No
  Sender: FDA-Public Use
  Company Number: US-SA-2013SA125202

PATIENT
  Age: 84 Year
  Sex: Male
  Weight: 72 kg

DRUGS (1)
  1. ALLEGRA [Suspect]
     Indication: COUGH
     Route: 048
     Dates: start: 201311

REACTIONS (1)
  - Cough [Not Recovered/Not Resolved]
